FAERS Safety Report 13478492 (Version 2)
Quarter: 2017Q3

REPORT INFORMATION
  Report Type: Spontaneous
  Country: CA (occurrence: CA)
  Receive Date: 20170425
  Receipt Date: 20170801
  Transmission Date: 20171127
  Serious: Yes (Hospitalization, Other)
  Sender: FDA-Public Use
  Company Number: CA-SA-2017SA072652

PATIENT
  Age: 63 Year
  Sex: Female

DRUGS (1)
  1. IRBESARTAN. [Suspect]
     Active Substance: IRBESARTAN
     Indication: HYPERTENSION
     Route: 065
     Dates: start: 2010

REACTIONS (5)
  - Joint injury [Unknown]
  - Fall [Unknown]
  - Asthma [Unknown]
  - Ankle fracture [Unknown]
  - Disturbance in attention [Unknown]

NARRATIVE: CASE EVENT DATE: 201603
